FAERS Safety Report 18173889 (Version 5)
Quarter: 2023Q2

REPORT INFORMATION
  Report Type: Spontaneous
  Country: US (occurrence: US)
  Receive Date: 20200819
  Receipt Date: 20230526
  Transmission Date: 20230722
  Serious: Yes (Other)
  Sender: FDA-Public Use
  Company Number: US-UCBSA-2020031788

PATIENT
  Age: 78 Year
  Sex: Female

DRUGS (44)
  1. CIMZIA [Suspect]
     Active Substance: CERTOLIZUMAB PEGOL
     Indication: Rheumatoid arthritis
     Dosage: 400 MILLIGRAM, EV 4 WEEKS
     Route: 058
     Dates: start: 201811
  2. PROLIA [Concomitant]
     Active Substance: DENOSUMAB
     Indication: Product used for unknown indication
  3. ELIQUIS [Concomitant]
     Active Substance: APIXABAN
  4. DOXYCYCLINE HYCLATE [DOXYCYCLINE] [Concomitant]
  5. BENICAR [Concomitant]
     Active Substance: OLMESARTAN MEDOXOMIL
  6. CYMBALTA [Concomitant]
     Active Substance: DULOXETINE HYDROCHLORIDE
  7. PRILOSEC [Concomitant]
     Active Substance: OMEPRAZOLE MAGNESIUM
  8. LYRICA [Concomitant]
     Active Substance: PREGABALIN
  9. ATARAX [Concomitant]
     Active Substance: HYDROXYZINE HYDROCHLORIDE
  10. METHADONE [Concomitant]
     Active Substance: METHADONE HYDROCHLORIDE
  11. PERCOCET [Concomitant]
     Active Substance: ACETAMINOPHEN\OXYCODONE HYDROCHLORIDE
  12. XANAX [Concomitant]
     Active Substance: ALPRAZOLAM
  13. FUROSEMIDE [Concomitant]
     Active Substance: FUROSEMIDE
  14. SUCRALFATE [Concomitant]
     Active Substance: SUCRALFATE
  15. ZOCOR [Concomitant]
     Active Substance: SIMVASTATIN
  16. SINGULAIR [Concomitant]
     Active Substance: MONTELUKAST SODIUM
  17. AMLODIPINE [Concomitant]
     Active Substance: AMLODIPINE BESYLATE
  18. LORAZEPAM [Concomitant]
     Active Substance: LORAZEPAM
  19. PATANOL [Concomitant]
     Active Substance: OLOPATADINE HYDROCHLORIDE
  20. DIFLUCAN [Concomitant]
     Active Substance: FLUCONAZOLE
  21. CIPRO [Concomitant]
     Active Substance: CIPROFLOXACIN HYDROCHLORIDE
  22. LIDOCAINE [Concomitant]
     Active Substance: LIDOCAINE
  23. IPRATROPIUM [Concomitant]
     Active Substance: IPRATROPIUM
  24. CHOLECALCIFEROL [Concomitant]
     Active Substance: CHOLECALCIFEROL
  25. IMVEXXY [Concomitant]
     Active Substance: ESTRADIOL
  26. ALLEGRA [Concomitant]
     Active Substance: FEXOFENADINE HYDROCHLORIDE
  27. DOCUSATE SODIUM [Concomitant]
     Active Substance: DOCUSATE SODIUM
  28. BISACODYL [Concomitant]
     Active Substance: BISACODYL
  29. MIRALAX [Concomitant]
     Active Substance: POLYETHYLENE GLYCOL 3350
  30. PROBIOTIC [BIFIDOBACTERIUM BIFIDUM;BIFIDOBACTERIUM LACTIS;BIFIDOBACTER [Concomitant]
  31. VITAMINS [Concomitant]
     Active Substance: VITAMINS
  32. COENZYME Q10 [Concomitant]
     Active Substance: DIETARY SUPPLEMENT\UBIDECARENONE
  33. FISH OIL [Concomitant]
     Active Substance: FISH OIL
  34. CALCIUM [Concomitant]
     Active Substance: CALCIUM
  35. FEOSOL BIFERA [Concomitant]
  36. CITRUCEL [Concomitant]
     Active Substance: METHYLCELLULOSE (4000 MPA.S)
  37. GLUCOSAMINE [Concomitant]
     Active Substance: GLUCOSAMINE
  38. MAGNESIUM [Concomitant]
     Active Substance: MAGNESIUM
  39. REPLENS [Concomitant]
     Active Substance: CARBOMER 934\GLYCERIN\METHYLPARABEN\PROPYLPARABEN\SODIUM HYDROXIDE
  40. MINERAL OIL [Concomitant]
     Active Substance: MINERAL OIL
  41. UNISOM [DOXYLAMINE SUCCINATE] [Concomitant]
  42. MUCINEX [Concomitant]
     Active Substance: GUAIFENESIN
  43. DONA GLUCOSAMINE [Concomitant]
  44. THERATEARS [Concomitant]
     Active Substance: CARBOXYMETHYLCELLULOSE SODIUM

REACTIONS (1)
  - Cellulitis [Recovered/Resolved]

NARRATIVE: CASE EVENT DATE: 20200719
